FAERS Safety Report 5669300-1 (Version None)
Quarter: 2008Q1

REPORT INFORMATION
  Report Type: 
  Country: None (occurrence: None)
  Receive Date: 20080317
  Receipt Date: 20080305
  Transmission Date: 20080703
  Serious: Yes (Other)
  Sender: FDA-Public Use
  Company Number: PHHO2008BE03279

PATIENT
  Age: 53 Year
  Sex: Female
  Weight: 58 kg

DRUGS (2)
  1. LETROZOLE [Suspect]
     Indication: BREAST CANCER
     Dosage: 2.5MG
     Route: 048
     Dates: start: 20050314
  2. ZOLEDRONIC ACID [Suspect]
     Indication: OSTEOPENIA
     Dosage: 4MG
     Route: 042
     Dates: start: 20080303, end: 20080303

REACTIONS (4)
  - MYOSITIS [None]
  - OEDEMA PERIPHERAL [None]
  - PAIN IN EXTREMITY [None]
  - VEIN DISORDER [None]
